FAERS Safety Report 9689703 (Version 5)
Quarter: 2014Q2

REPORT INFORMATION
  Report Type: Spontaneous
  Country: US (occurrence: US)
  Receive Date: 20131115
  Receipt Date: 20140430
  Transmission Date: 20141212
  Serious: No
  Sender: FDA-Public Use
  Company Number: US-009507513-1311USA002842

PATIENT
  Age: 48 Year
  Sex: Female

DRUGS (5)
  1. PEGINTRON [Suspect]
     Indication: HEPATITIS C
     Dosage: REDIPEN, 0.5 ML, Q7DAYS
     Route: 058
     Dates: start: 20131104, end: 20140205
  2. REBETOL [Suspect]
     Indication: HEPATITIS C
     Dosage: 1200 MG, TWICE A DAY
     Route: 048
     Dates: start: 20131104, end: 20140205
  3. VICTRELIS [Suspect]
     Indication: HEPATITIS C
     Dosage: 2400 MG, THREE TIMES A DAY
     Route: 048
     Dates: start: 20131202, end: 20140205
  4. PROMACTA [Concomitant]
     Dosage: 25 MG, UNK
  5. ONDANSETRON HYDROCHLORIDE [Concomitant]
     Dosage: 8 MG, UNK

REACTIONS (14)
  - Hunger [Unknown]
  - Pyrexia [Unknown]
  - Somnolence [Unknown]
  - Nausea [Unknown]
  - Vomiting [Unknown]
  - Nausea [Unknown]
  - Fatigue [Unknown]
  - Somnolence [Unknown]
  - Weight decreased [Unknown]
  - Nausea [Unknown]
  - Nausea [Unknown]
  - Weight decreased [Unknown]
  - Therapeutic response decreased [Unknown]
  - Drug ineffective [Unknown]
